FAERS Safety Report 12291186 (Version 1)
Quarter: 2016Q2

REPORT INFORMATION
  Report Type: Spontaneous
  Country: US (occurrence: US)
  Receive Date: 20160421
  Receipt Date: 20160421
  Transmission Date: 20160815
  Serious: Yes (Hospitalization)
  Sender: FDA-Public Use
  Company Number: US-WATSON-2016-08290

PATIENT
  Age: 48 Year
  Sex: Male

DRUGS (6)
  1. JANUMET [Concomitant]
     Active Substance: METFORMIN HYDROCHLORIDE\SITAGLIPTIN PHOSPHATE
     Indication: DIABETES MELLITUS
     Dosage: 50 MG/1000 MG, TWICE DAILY
     Route: 048
  2. INVOKANA [Concomitant]
     Active Substance: CANAGLIFLOZIN
     Indication: DIABETES MELLITUS
     Dosage: 300 MG, EVERY MORNING
     Route: 048
  3. BUPROPION HYDROCHLORIDE (WATSON LABORATORIES) [Suspect]
     Active Substance: BUPROPION HYDROCHLORIDE
     Indication: STRESS
     Dosage: 300 MG, ONCE DAILY
     Route: 048
     Dates: start: 20160328, end: 201604
  4. TAMSULOSIN HYDROCHLORIDE. [Concomitant]
     Active Substance: TAMSULOSIN HYDROCHLORIDE
     Indication: PROSTATIC DISORDER
     Dosage: 0.4 MG, AT BEDTIME
     Route: 048
  5. NORTRIPTYLINE [Concomitant]
     Active Substance: NORTRIPTYLINE
     Indication: LIMB DISCOMFORT
     Dosage: 10 MG, AT BEDTIME
     Route: 048
  6. TRAMADOL. [Concomitant]
     Active Substance: TRAMADOL
     Indication: PAIN
     Dosage: 50 MG, PRN
     Route: 048

REACTIONS (4)
  - Drug withdrawal syndrome [Not Recovered/Not Resolved]
  - Tremor [Not Recovered/Not Resolved]
  - Heart rate increased [Recovered/Resolved]
  - Dysphemia [Not Recovered/Not Resolved]

NARRATIVE: CASE EVENT DATE: 20160413
